FAERS Safety Report 15323483 (Version 2)
Quarter: 2019Q1

REPORT INFORMATION
  Report Type: Spontaneous
  Country: JP (occurrence: JP)
  Receive Date: 20180827
  Receipt Date: 20190311
  Transmission Date: 20190417
  Serious: Yes (Hospitalization)
  Sender: FDA-Public Use
  Company Number: JP-BAUSCH-BL-2018-023760

PATIENT
  Age: 45 Year
  Sex: Male

DRUGS (4)
  1. TALION [Concomitant]
     Indication: PRODUCT USED FOR UNKNOWN INDICATION
  2. LUMICEF SUBCUTANEOUS INJECTION SYRINGE 210 (BRODALUMAB) INJECTION [Suspect]
     Active Substance: BRODALUMAB
     Route: 058
  3. LUMICEF SUBCUTANEOUS INJECTION SYRINGE 210 (BRODALUMAB) INJECTION [Suspect]
     Active Substance: BRODALUMAB
     Indication: PSORIASIS
     Route: 058
     Dates: start: 20130319
  4. INSULIN [Concomitant]
     Active Substance: INSULIN NOS
     Indication: PRODUCT USED FOR UNKNOWN INDICATION

REACTIONS (1)
  - Myocardial infarction [Recovered/Resolved]

NARRATIVE: CASE EVENT DATE: 20180816
